FAERS Safety Report 15711610 (Version 2)
Quarter: 2018Q4

REPORT INFORMATION
  Report Type: Spontaneous
  Country: CZ (occurrence: CZ)
  Receive Date: 20181212
  Receipt Date: 20181227
  Transmission Date: 20190205
  Serious: Yes (Life-Threatening, Hospitalization, Other)
  Sender: FDA-Public Use
  Company Number: CZ-ABBVIE-18S-217-2585496-00

PATIENT
  Age: 15 Year
  Sex: Male

DRUGS (6)
  1. SEVORANE [Suspect]
     Active Substance: SEVOFLURANE
     Indication: ARTHROSCOPY
     Route: 055
     Dates: start: 20181127, end: 20181127
  2. NOVALGIN (CAFFEINE\PARACETAMOL\PROPYPHENAZONE) [Suspect]
     Active Substance: ACETAMINOPHEN\CAFFEINE\PROPYPHENAZONE
     Dosage: 5ML-2,5G
     Route: 042
     Dates: start: 20181127, end: 20181127
  3. NOVALGIN (CAFFEINE\PARACETAMOL\PROPYPHENAZONE) [Suspect]
     Active Substance: ACETAMINOPHEN\CAFFEINE\PROPYPHENAZONE
     Indication: ARTHROSCOPY
     Dosage: 5ML-2,5G
     Route: 042
     Dates: start: 20181127, end: 20181127
  4. SUFENTA [Suspect]
     Active Substance: SUFENTANIL CITRATE
     Indication: ARTHROSCOPY
     Dosage: 10UG IN 2ML
     Route: 042
     Dates: start: 20181127, end: 20181127
  5. PROPOFOL. [Suspect]
     Active Substance: PROPOFOL
     Indication: ARTHROSCOPY
     Route: 042
  6. FYZIOLOGICKY ROZTOK [Suspect]
     Active Substance: SODIUM CHLORIDE
     Indication: ARTHROSCOPY
     Route: 065

REACTIONS (8)
  - Pyrexia [Recovering/Resolving]
  - Suspected product quality issue [Unknown]
  - Hepatorenal failure [Recovering/Resolving]
  - Tachycardia [Recovering/Resolving]
  - Septic shock [Recovering/Resolving]
  - Device issue [Unknown]
  - Hypotension [Recovering/Resolving]
  - Chest pain [Recovering/Resolving]

NARRATIVE: CASE EVENT DATE: 20181127
